FAERS Safety Report 15982344 (Version 4)
Quarter: 2019Q2

REPORT INFORMATION
  Report Type: Report from Study
  Country: US (occurrence: US)
  Receive Date: 20190219
  Receipt Date: 20190510
  Transmission Date: 20190711
  Serious: Yes (Hospitalization, Other)
  Sender: FDA-Public Use
  Company Number: PHEH2019US007485

PATIENT
  Sex: Male

DRUGS (2)
  1. ENTRESTO [Suspect]
     Active Substance: SACUBITRIL\VALSARTAN
     Indication: PRODUCT USED FOR UNKNOWN INDICATION
     Dosage: 1 DF (SACUBITRIL 97 MG/ VALSARTAN 103 MG), UNK
     Route: 065
  2. ENTRESTO [Suspect]
     Active Substance: SACUBITRIL\VALSARTAN
     Dosage: 1 DF (SACUBITRIL 24 MG/ VALSARTAN 26 MG), UNK
     Route: 065

REACTIONS (5)
  - Pneumonia [Unknown]
  - Infection [Unknown]
  - Sepsis [Unknown]
  - Clostridium difficile colitis [Unknown]
  - Gout [Unknown]
